FAERS Safety Report 6307449-0 (Version None)
Quarter: 2009Q3

REPORT INFORMATION
  Report Type: 
  Country: None (occurrence: None)
  Receive Date: 20090813
  Receipt Date: 20090625
  Transmission Date: 20100115
  Serious: No
  Sender: FDA-Public Use
  Company Number: US-BRISTOL-MYERS SQUIBB COMPANY-14672620

PATIENT
  Age: 61 Year

DRUGS (1)
  1. IXEMPRA KIT [Suspect]
     Indication: BREAST CANCER
     Dosage: 2 WEEKS ON 1 WEEK OFF. REDUCED TO 19 MG
     Dates: start: 20090604, end: 20090604

REACTIONS (1)
  - HEPATIC FUNCTION ABNORMAL [None]
